FAERS Safety Report 5725168-6 (Version None)
Quarter: 2008Q2

REPORT INFORMATION
  Report Type: 
  Country: None (occurrence: None)
  Receive Date: 20080501
  Receipt Date: 20080418
  Transmission Date: 20081010
  Serious: Yes (Hospitalization, Congenital Anomaly)
  Sender: FDA-Public Use
  Company Number: A0699566A

PATIENT
  Sex: Male
  Weight: 1.8 kg

DRUGS (7)
  1. PAXIL [Suspect]
     Indication: POSTPARTUM DEPRESSION
     Dosage: 20MG PER DAY
     Dates: start: 20020301, end: 20021001
  2. VITAMIN TAB [Concomitant]
  3. CLINDAMYCIN [Concomitant]
  4. ASTHMA MEDICATION [Concomitant]
  5. ALLERGY MEDICATION [Concomitant]
  6. AZITHROMYCIN [Concomitant]
     Dates: start: 20021201
  7. DURATUSS [Concomitant]
     Dates: start: 20021201

REACTIONS (18)
  - ACUTE RESPIRATORY DISTRESS SYNDROME [None]
  - APNOEA [None]
  - COLLAPSE OF LUNG [None]
  - DRUG EXPOSURE DURING PREGNANCY [None]
  - EATING DISORDER [None]
  - HYPOTENSION [None]
  - HYPOXIA [None]
  - IMMUNOGLOBULINS DECREASED [None]
  - INFECTION [None]
  - INTESTINAL PERFORATION [None]
  - LUNG INJURY [None]
  - PNEUMONIA [None]
  - PREMATURE BABY [None]
  - PULMONARY OEDEMA [None]
  - PULMONARY VALVE STENOSIS [None]
  - RESPIRATORY DISORDER [None]
  - RESPIRATORY DISTRESS [None]
  - TRANSPOSITION OF THE GREAT VESSELS [None]
